FAERS Safety Report 6717925-4 (Version None)
Quarter: 2010Q2

REPORT INFORMATION
  Report Type: 
  Country: None (occurrence: None)
  Receive Date: 20100510
  Receipt Date: 20100426
  Transmission Date: 20101027
  Serious: Yes (Other)
  Sender: FDA-Public Use
  Company Number: PHEH2006US03612

PATIENT

DRUGS (52)
  1. ZOMETA [Suspect]
     Dosage: 4 MG, QMO
     Dates: start: 20030131, end: 20051101
  2. METHADONE HCL [Concomitant]
     Indication: DRUG DEPENDENCE
     Dates: start: 20000101
  3. AVASTIN [Concomitant]
  4. ADRIAMYCIN PFS [Concomitant]
  5. ZINECARD [Concomitant]
  6. ANTIBIOTICS [Concomitant]
     Indication: OSTEONECROSIS OF JAW
     Dates: start: 20070601
  7. DILAUDID [Concomitant]
  8. DIPHENHYDRAMINE [Concomitant]
  9. HYDROMORPHONE HCL [Concomitant]
  10. METOCLOPRAMIDE HYDROCHLORIDE [Concomitant]
  11. NALBUPHINE [Concomitant]
  12. ONDANSETRON [Concomitant]
  13. SENOKOT                                 /UNK/ [Concomitant]
  14. LORAZEPAM [Concomitant]
  15. PROCRIT                            /00909301/ [Concomitant]
  16. NEUPOGEN [Concomitant]
  17. SCOPOLAMINE [Concomitant]
  18. FILGRASTIM [Concomitant]
  19. NALOXONE [Concomitant]
  20. FEMARA [Concomitant]
  21. TAXOTERE [Concomitant]
  22. XELODA [Concomitant]
  23. HERCEPTIN [Concomitant]
  24. AROMASIN [Concomitant]
  25. OXYCODONE [Concomitant]
  26. LASIX [Concomitant]
  27. VANCOMYCIN [Concomitant]
  28. ROCEPHIN [Concomitant]
  29. RANITIDINE [Concomitant]
  30. DEXAMETHASONE [Concomitant]
  31. VIOXX [Concomitant]
  32. TYLENOL W/ CODEINE NO. 3 [Concomitant]
  33. NAVELBINE [Concomitant]
  34. AUGMENTIN '125' [Concomitant]
  35. ALOXI [Concomitant]
  36. CAPECITABINE [Concomitant]
  37. PYRIDOXINE HCL [Concomitant]
  38. DOCETAXEL [Concomitant]
  39. RADIATION THERAPY [Concomitant]
  40. METHOTREXATE [Concomitant]
  41. THIOTEPA [Concomitant]
  42. DECADRON                                /NET/ [Concomitant]
  43. CHEMOTHERAPEUTICS NOS [Concomitant]
  44. COMPAZINE [Concomitant]
  45. REGLAN [Concomitant]
  46. ZOFRAN [Concomitant]
  47. MOXIFLOXACIN HCL [Concomitant]
  48. AVELOX [Concomitant]
  49. CIPRO [Concomitant]
  50. CEFTRIAXONE [Concomitant]
  51. NEOSPORIN (NEOMYCIN SULFATE/POLYMYXIN B SULFATE) [Concomitant]
  52. CLINDAMYCIN [Concomitant]

REACTIONS (47)
  - ANAEMIA [None]
  - ANXIETY [None]
  - APHASIA [None]
  - BACTERAEMIA [None]
  - BONE CYST [None]
  - BONE DISORDER [None]
  - BONE FRAGMENTATION [None]
  - BONE NEOPLASM MALIGNANT [None]
  - CENTRAL VENOUS CATHETERISATION [None]
  - CEREBROSPINAL FLUID RESERVOIR PLACEMENT [None]
  - CHILLS [None]
  - CHOLELITHIASIS [None]
  - CHRONIC SINUSITIS [None]
  - DEBRIDEMENT [None]
  - DENTAL OPERATION [None]
  - DEVICE RELATED INFECTION [None]
  - DYSPHAGIA [None]
  - DYSPNOEA [None]
  - GALLBLADDER DISORDER [None]
  - INJURY [None]
  - LEFT ATRIAL DILATATION [None]
  - MENINGITIS [None]
  - METASTASES TO BONE [None]
  - METASTASES TO CENTRAL NERVOUS SYSTEM [None]
  - METASTASES TO MENINGES [None]
  - METASTASES TO SPINE [None]
  - NAUSEA [None]
  - NEUROPATHY PERIPHERAL [None]
  - NEUTROPENIA [None]
  - ORAL CANDIDIASIS [None]
  - OSTEOMYELITIS [None]
  - OSTEONECROSIS OF JAW [None]
  - OSTEOSCLEROSIS [None]
  - PAIN IN JAW [None]
  - PANCYTOPENIA [None]
  - PARAESTHESIA [None]
  - PHOTOSENSITIVITY REACTION [None]
  - PLATELET COUNT DECREASED [None]
  - PLEURAL EFFUSION [None]
  - PYREXIA [None]
  - RIGHT ATRIAL DILATATION [None]
  - SINUSITIS [None]
  - STAPHYLOCOCCAL SEPSIS [None]
  - TOOTH DISORDER [None]
  - TRICUSPID VALVE INCOMPETENCE [None]
  - VOCAL CORD PARALYSIS [None]
  - WEIGHT DECREASED [None]
